FAERS Safety Report 10206843 (Version 1)
Quarter: 2014Q2

REPORT INFORMATION
  Report Type: Spontaneous
  Country: US (occurrence: None)
  Receive Date: 20140528
  Receipt Date: 20140528
  Transmission Date: 20141212
  Serious: No
  Sender: FDA-Public Use
  Company Number: None

PATIENT
  Age: 63 Year
  Sex: Female

DRUGS (1)
  1. TRAMADOL HCL [Suspect]
     Indication: BACK PAIN
     Dosage: 1 TAB AS NEEDED TAKEN BY MOUTH
     Route: 048
     Dates: start: 20140521

REACTIONS (3)
  - Dizziness [None]
  - Nausea [None]
  - Vomiting [None]
